FAERS Safety Report 22350482 (Version 3)
Quarter: 2024Q4

REPORT INFORMATION
  Report Type: Spontaneous
  Country: IT (occurrence: IT)
  Receive Date: 20230522
  Receipt Date: 20241212
  Transmission Date: 20250114
  Serious: Yes (Other)
  Sender: ADVANZ PHARMA
  Company Number: IT-ADVANZ PHARMA-202305003681

PATIENT

DRUGS (5)
  1. ZONISAMIDE [Suspect]
     Active Substance: ZONISAMIDE
     Indication: Epilepsy
     Dosage: 500 MG, QD, (ZONEGRAN, 5 X 100 MG PER DAY)
     Dates: start: 2000
  2. ZONISAMIDE [Suspect]
     Active Substance: ZONISAMIDE
     Dosage: 100 MG (2 UNITS IN THE MORNING AND 3UNITES IN THE EVENING)
     Dates: start: 20240419
  3. PHENOBARBITAL [Concomitant]
     Active Substance: PHENOBARBITAL
     Dosage: UNK  (1 UNIT IN THE MORNING+ 1/2 UNIT IN THE EVENING + 1/4 UNITS IN THE EVENING)
  4. Balavita [Concomitant]
     Dosage: 10 INTERNATIONAL UNIT PER MILLILITRE
  5. FYCOMPA [Concomitant]
     Active Substance: PERAMPANEL
     Dosage: 4 MG, BID (2 UNITS)

REACTIONS (3)
  - Glaucoma [Unknown]
  - Visual field defect [Unknown]
  - Fall [Unknown]

NARRATIVE: CASE EVENT DATE: 20240908
